FAERS Safety Report 8976705 (Version 1)
Quarter: 2012Q4

REPORT INFORMATION
  Report Type: 
  Country: US (occurrence: US)
  Receive Date: 20121220
  Receipt Date: 20121220
  Transmission Date: 20130627
  Serious: Yes (Other)
  Sender: FDA-Public Use
  Company Number: US-BANPHARM-20120436

PATIENT
  Age: 95 Year
  Sex: Female

DRUGS (1)
  1. ALEVE [Suspect]
     Route: 048

REACTIONS (1)
  - Choking [Recovered/Resolved]
